FAERS Safety Report 24723729 (Version 2)
Quarter: 2025Q1

REPORT INFORMATION
  Report Type: Spontaneous
  Country: US (occurrence: US)
  Receive Date: 20241211
  Receipt Date: 20250108
  Transmission Date: 20250409
  Serious: No
  Sender: SANOFI AVENTIS
  Company Number: US-SA-2024SA364163

PATIENT
  Age: 23 Year
  Sex: Male

DRUGS (1)
  1. ELOCTATE [Suspect]
     Active Substance: EFMOROCTOCOG ALFA
     Route: 042

REACTIONS (4)
  - Haemorrhage [Unknown]
  - Ehlers-Danlos syndrome [Unknown]
  - Arthropathy [Unknown]
  - Intentional dose omission [Unknown]
